FAERS Safety Report 23713139 (Version 1)
Quarter: 2024Q2

REPORT INFORMATION
  Report Type: Spontaneous
  Country: US (occurrence: US)
  Receive Date: 20240405
  Receipt Date: 20240405
  Transmission Date: 20240716
  Serious: No
  Sender: FDA-Public Use
  Company Number: US-BIOGEN-2024BI01253498

PATIENT
  Sex: Female

DRUGS (1)
  1. TYSABRI [Suspect]
     Active Substance: NATALIZUMAB
     Indication: Multiple sclerosis
     Route: 050
     Dates: start: 20120315

REACTIONS (5)
  - Gait disturbance [Unknown]
  - General physical health deterioration [Unknown]
  - Hemiparesis [Unknown]
  - Muscle fatigue [Unknown]
  - Neck mass [Unknown]
